FAERS Safety Report 9188648 (Version 1)
Quarter: 2013Q1

REPORT INFORMATION
  Report Type: Spontaneous
  Country: IT (occurrence: IT)
  Receive Date: 20130325
  Receipt Date: 20130325
  Transmission Date: 20140127
  Serious: Yes (Other)
  Sender: FDA-Public Use
  Company Number: IT-AMGEN-ITASP2013020428

PATIENT
  Age: 70 Year
  Sex: Female
  Weight: 65 kg

DRUGS (6)
  1. ENBREL [Suspect]
     Indication: RHEUMATOID ARTHRITIS
     Dosage: 50 MG, WEEKLY
     Route: 058
     Dates: start: 20080815, end: 20121203
  2. METHOTREXATE SODIUM [Concomitant]
     Indication: RHEUMATOID ARTHRITIS
     Dosage: 50 MG, UNK
     Route: 058
  3. LANSOX [Concomitant]
     Dosage: 15 MG, UNK
     Route: 048
  4. FOLINA                             /00024201/ [Concomitant]
     Dosage: 5 MG, UNK
     Route: 048
  5. BONVIVA [Concomitant]
     Indication: OSTEOPOROSIS
     Dosage: 150 MG, UNK
     Route: 048
  6. DIBASE [Concomitant]
     Dosage: 2500 IU, UNK
     Route: 048

REACTIONS (3)
  - Hypoacusis [Recovering/Resolving]
  - Pyrexia [Recovering/Resolving]
  - Nasopharyngitis [Recovering/Resolving]
